FAERS Safety Report 15602448 (Version 1)
Quarter: 2018Q4

REPORT INFORMATION
  Report Type: Spontaneous
  Country: US (occurrence: US)
  Receive Date: 20181109
  Receipt Date: 20181109
  Transmission Date: 20190205
  Serious: No
  Sender: FDA-Public Use
  Company Number: US-UPSHER-SMITH LABORATORIES, LLC-2018USL00189

PATIENT
  Sex: Female
  Weight: 68.93 kg

DRUGS (3)
  1. JANTOVEN [Suspect]
     Active Substance: WARFARIN SODIUM
     Indication: ATRIAL FIBRILLATION
     Dosage: 4 MG, 1X/DAY
     Route: 048
     Dates: start: 2006
  2. JANTOVEN [Suspect]
     Active Substance: WARFARIN SODIUM
     Indication: ATRIAL FIBRILLATION
     Dosage: 2 MG, AS DIRECTED (WITH 4MG TABLET)
     Route: 048
     Dates: start: 2006
  3. LEVOTHYROXINE. [Concomitant]
     Active Substance: LEVOTHYROXINE

REACTIONS (2)
  - Reaction to excipient [Not Recovered/Not Resolved]
  - Flushing [Recovered/Resolved]
